FAERS Safety Report 10867750 (Version 3)
Quarter: 2015Q2

REPORT INFORMATION
  Report Type: Spontaneous
  Country: US (occurrence: US)
  Receive Date: 20150225
  Receipt Date: 20150401
  Transmission Date: 20150821
  Serious: Yes (Hospitalization)
  Sender: FDA-Public Use
  Company Number: US-GILEAD-2015-0138482

PATIENT
  Age: 55 Year
  Sex: Female

DRUGS (11)
  1. LETAIRIS [Suspect]
     Active Substance: AMBRISENTAN
     Indication: PULMONARY HYPERTENSION
     Dosage: 10 MG, UNK
     Route: 065
     Dates: start: 20080411
  2. SILDENAFIL. [Concomitant]
     Active Substance: SILDENAFIL
  3. XANAX [Concomitant]
     Active Substance: ALPRAZOLAM
  4. LIBRAX [Concomitant]
     Active Substance: CHLORDIAZEPOXIDE HYDROCHLORIDE\CLIDINIUM BROMIDE
  5. COUMADIN [Concomitant]
     Active Substance: WARFARIN SODIUM
  6. FUROSEMIDE. [Concomitant]
     Active Substance: FUROSEMIDE
  7. PREVACID [Concomitant]
     Active Substance: LANSOPRAZOLE
  8. DIGOXIN. [Concomitant]
     Active Substance: DIGOXIN
  9. CALTRATE [Concomitant]
     Active Substance: CALCIUM CARBONATE
  10. TYVASO [Concomitant]
     Active Substance: TREPROSTINIL
  11. IRON [Concomitant]
     Active Substance: IRON

REACTIONS (2)
  - Post procedural complication [Recovered/Resolved]
  - Dyspnoea [Unknown]

NARRATIVE: CASE EVENT DATE: 20150211
